FAERS Safety Report 17257876 (Version 1)
Quarter: 2020Q1

REPORT INFORMATION
  Report Type: Spontaneous
  Country: US (occurrence: US)
  Receive Date: 20200110
  Receipt Date: 20200110
  Transmission Date: 20200409
  Serious: Yes (Other)
  Sender: FDA-Public Use
  Company Number: US-ASTRAZENECA-2020SE01845

PATIENT
  Age: 70 Year
  Sex: Female

DRUGS (3)
  1. BEVESPI AEROSPHERE [Suspect]
     Active Substance: FORMOTEROL FUMARATE\GLYCOPYRROLATE
     Indication: CHRONIC OBSTRUCTIVE PULMONARY DISEASE
     Dosage: 2 PUFFS IN THE MORNING AND 2 PUFFS AT NIGHT
     Route: 055
  2. ELIQUIS [Concomitant]
     Active Substance: APIXABAN
  3. NEBULIZER OF IPRATROPIUM AND ALBUTEROL [Concomitant]
     Route: 055

REACTIONS (3)
  - Blindness [Unknown]
  - Off label use [Unknown]
  - Glaucoma [Not Recovered/Not Resolved]
